FAERS Safety Report 14328300 (Version 1)
Quarter: 2017Q4

REPORT INFORMATION
  Report Type: Spontaneous
  Country: US (occurrence: US)
  Receive Date: 20171227
  Receipt Date: 20171227
  Transmission Date: 20180321
  Serious: No
  Sender: FDA-Public Use
  Company Number: US-PFIZER INC-2017548494

PATIENT
  Age: 82 Year
  Sex: Male
  Weight: 91 kg

DRUGS (3)
  1. INLYTA [Suspect]
     Active Substance: AXITINIB
     Dosage: 2 MG (TWO 1MG TABLETS), 1X/DAY
  2. INLYTA [Suspect]
     Active Substance: AXITINIB
     Dosage: 3 MG (THREE 1MG TABLETS), 1X/DAY
  3. INLYTA [Suspect]
     Active Substance: AXITINIB
     Indication: RENAL CELL CARCINOMA
     Dosage: 5 MG, 1X/DAY
     Route: 048
     Dates: start: 2017

REACTIONS (6)
  - Drug intolerance [Unknown]
  - Malaise [Unknown]
  - Myalgia [Recovering/Resolving]
  - Muscle spasms [Recovering/Resolving]
  - Fatigue [Recovering/Resolving]
  - Asthenia [Recovering/Resolving]

NARRATIVE: CASE EVENT DATE: 2017
